FAERS Safety Report 9553028 (Version 1)
Quarter: 2013Q3

REPORT INFORMATION
  Report Type: Spontaneous
  Country: US (occurrence: None)
  Receive Date: 20130912
  Receipt Date: 20130912
  Transmission Date: 20140515
  Serious: Yes (Hospitalization)
  Sender: FDA-Public Use
  Company Number: 2013PROUSA03128

PATIENT
  Age: 82 Year
  Sex: Male
  Weight: 77.6 kg

DRUGS (7)
  1. PROVENGE (SIPULEUCEL-T) SUSPENSION [Suspect]
     Indication: PROSTATE CANCER METASTATIC
     Route: 042
     Dates: start: 20120614, end: 20120614
  2. ASPIRIN (ACEYTLSALICYLIC ACID) [Concomitant]
  3. CALCIUM CARBONATE AND VITAMIN D (CALCIUM CARBONATE,COLECALCIFEROL) [Concomitant]
  4. FISH OIL (FISH OIL) [Concomitant]
  5. VITAMIN D (COLECALCIFEROL) [Concomitant]
  6. LUPRON DEPOT04 MONTH (LEUPRORELIN ACETATE) [Concomitant]
  7. RELAFEN INABUMETONE) [Concomitant]

REACTIONS (5)
  - Cerebrovascular accident [None]
  - Thalamic infarction [None]
  - Lacunar infarction [None]
  - Vertebral artery occlusion [None]
  - Cerebral arteriosclerosis [None]
